FAERS Safety Report 8784862 (Version 1)
Quarter: 2012Q4

REPORT INFORMATION
  Report Type: Spontaneous
  Country: JP (occurrence: None)
  Receive Date: 20120831
  Receipt Date: 20120831
  Transmission Date: 20130627
  Serious: Yes (Other)
  Sender: FDA-Public Use
  Company Number: 2012P1054844

PATIENT
  Age: 68 Year
  Sex: Male

DRUGS (1)
  1. METRONIDAZOLE [Suspect]
     Indication: LIVER ABSCESS
     Dates: start: 200408

REACTIONS (7)
  - Toxicity to various agents [None]
  - Hepatic cirrhosis [None]
  - Hepatocellular carcinoma [None]
  - Hepatic encephalopathy [None]
  - Hepatic function abnormal [None]
  - Pneumonia klebsiella [None]
  - Clostridial infection [None]
